FAERS Safety Report 8411764 (Version 8)
Quarter: 2017Q1

REPORT INFORMATION
  Report Type: Spontaneous
  Country: US (occurrence: US)
  Receive Date: 20120217
  Receipt Date: 20170113
  Transmission Date: 20170429
  Serious: Yes (Hospitalization, Disabling, Other)
  Sender: FDA-Public Use
  Company Number: US-009507513-1202USA02464

PATIENT
  Sex: Female
  Weight: 59.19 kg

DRUGS (5)
  1. FOSAMAX [Suspect]
     Active Substance: ALENDRONATE SODIUM
     Indication: OSTEOPOROSIS
     Dosage: 70 MG, QW
     Route: 048
     Dates: start: 20010810, end: 20100301
  2. LIPITOR [Concomitant]
     Active Substance: ATORVASTATIN CALCIUM
     Dosage: 20 MG, UNK
  3. HORMONES (UNSPECIFIED) [Concomitant]
     Active Substance: UNSPECIFIED INGREDIENT
     Dates: start: 1995, end: 2001
  4. PREMPRO [Concomitant]
     Active Substance: ESTROGENS, CONJUGATED\MEDROXYPROGESTERONE ACETATE
     Indication: MENOPAUSE
  5. ZOCOR [Concomitant]
     Active Substance: SIMVASTATIN
     Dosage: 40 MG, UNK
     Route: 048

REACTIONS (29)
  - Malignant melanoma [Unknown]
  - Femur fracture [Recovered/Resolved]
  - Irritable bowel syndrome [Not Recovered/Not Resolved]
  - Osteopenia [Unknown]
  - Drug ineffective [Unknown]
  - Tooth disorder [Unknown]
  - Fall [Unknown]
  - Restless legs syndrome [Unknown]
  - Pain in extremity [Unknown]
  - Tendonitis [Unknown]
  - Osteoarthritis [Not Recovered/Not Resolved]
  - Synovial cyst [Unknown]
  - Breast disorder [Unknown]
  - Constipation [Unknown]
  - Low turnover osteopathy [Not Recovered/Not Resolved]
  - Diabetic neuropathy [Unknown]
  - Sinusitis [Unknown]
  - Inner ear disorder [Unknown]
  - Carpal tunnel syndrome [Unknown]
  - Lumbar spinal stenosis [Unknown]
  - Type 2 diabetes mellitus [Unknown]
  - Oropharyngeal pain [Unknown]
  - Hypothyroidism [Unknown]
  - Adnexa uteri mass [Unknown]
  - Arthralgia [Unknown]
  - Vertigo [Unknown]
  - Gastrooesophageal reflux disease [Unknown]
  - Skin lesion [Unknown]
  - Diverticulitis [Unknown]

NARRATIVE: CASE EVENT DATE: 20020101
